FAERS Safety Report 6689823-6 (Version None)
Quarter: 2010Q2

REPORT INFORMATION
  Report Type: 
  Country: None (occurrence: None)
  Receive Date: 20100412
  Receipt Date: 20100225
  Transmission Date: 20101027
  Serious: No
  Sender: FDA-Public Use
  Company Number: 1000012063

PATIENT
  Age: 80 Year
  Sex: Female

DRUGS (8)
  1. BYSTOLIC [Suspect]
     Indication: HYPERTENSION
     Dosage: 5 MG (5 MG, 1 IN 1 D), ORAL
     Route: 048
     Dates: start: 20090901, end: 20100225
  2. CITALOPRAM HYDROBROMIDE [Concomitant]
  3. ALLOPURINOL [Concomitant]
  4. LEVOTHYROXINE SODIUM [Concomitant]
  5. PROTONIX [Concomitant]
  6. LORAZEPAM [Concomitant]
  7. AMOLODIPINE [Concomitant]
  8. AMBIEN [Concomitant]

REACTIONS (1)
  - RASH [None]
